FAERS Safety Report 13612538 (Version 4)
Quarter: 2019Q1

REPORT INFORMATION
  Report Type: Spontaneous
  Country: US (occurrence: US)
  Receive Date: 20170605
  Receipt Date: 20190115
  Transmission Date: 20190417
  Serious: No
  Sender: FDA-Public Use
  Company Number: US-PFIZER INC-2017023863

PATIENT
  Age: 54 Year
  Sex: Female

DRUGS (9)
  1. DOCETAXEL. [Suspect]
     Active Substance: DOCETAXEL
     Indication: TRIPLE NEGATIVE BREAST CANCER
     Dosage: 128 MG, CYCLIC (EVERY 3 WEEKS, SIX CYCLES)
     Dates: start: 20140516, end: 20140829
  2. NEURONTIN [Concomitant]
     Active Substance: GABAPENTIN
     Dosage: UNK, REGULARLY
     Dates: start: 201412, end: 201507
  3. NEXIUM (OTC) [Concomitant]
     Dosage: UNK, REGULARLY
     Dates: start: 2006
  4. ASPIRIN. [Concomitant]
     Active Substance: ASPIRIN
     Dosage: UNK, REGULARLY
     Dates: start: 2006
  5. METOPROLOL. [Concomitant]
     Active Substance: METOPROLOL
     Dosage: UNK, REGULARLY
     Dates: start: 2006
  6. PARAPLATIN [Concomitant]
     Active Substance: CARBOPLATIN
     Indication: CHEMOTHERAPY
     Dosage: UNK
  7. TAXOTERE [Concomitant]
     Active Substance: DOCETAXEL
     Indication: CHEMOTHERAPY
     Dosage: 128 MG, UNK (OVER 2 HOURS)
  8. CARBOPLATIN. [Concomitant]
     Active Substance: CARBOPLATIN
     Indication: CHEMOTHERAPY
     Dosage: 540 MG, UNK (OVER 1 HOUR)
  9. EFFEXOR [Concomitant]
     Active Substance: VENLAFAXINE HYDROCHLORIDE
     Dosage: UNK, REGULARLY
     Dates: start: 201412

REACTIONS (5)
  - Madarosis [Not Recovered/Not Resolved]
  - Hair texture abnormal [Not Recovered/Not Resolved]
  - Alopecia [Not Recovered/Not Resolved]
  - Hair disorder [Not Recovered/Not Resolved]
  - Hair colour changes [Not Recovered/Not Resolved]

NARRATIVE: CASE EVENT DATE: 20150228
